FAERS Safety Report 4775565-0 (Version None)
Quarter: 2005Q3

REPORT INFORMATION
  Report Type: 
  Country: None (occurrence: None)
  Receive Date: 20050922
  Receipt Date: 20050902
  Transmission Date: 20060218
  Serious: Yes (Hospitalization)
  Sender: FDA-Public Use
  Company Number: 200512973EU

PATIENT
  Age: 58 Year
  Sex: Female
  Weight: 64.4 kg

DRUGS (7)
  1. ENOXAPARIN SODIUM [Suspect]
     Indication: THROMBOSIS PROPHYLAXIS
     Route: 058
     Dates: start: 20050806, end: 20050817
  2. VICODIN [Suspect]
     Indication: PROCEDURAL PAIN
     Dosage: DOSE: 1 - 2 TABLETS
     Route: 048
     Dates: start: 20050808
  3. INSULIN [Concomitant]
  4. METFORMIN HCL [Concomitant]
  5. ACTOS [Concomitant]
  6. ZOCOR [Concomitant]
  7. PRILOSEC [Concomitant]

REACTIONS (8)
  - ABDOMINAL PAIN [None]
  - BLOOD ALKALINE PHOSPHATASE INCREASED [None]
  - BLOOD GLUCOSE INCREASED [None]
  - DUODENAL POLYP [None]
  - GASTRITIS [None]
  - HAEMATOCRIT DECREASED [None]
  - THROMBOCYTHAEMIA [None]
  - WHITE BLOOD CELL COUNT INCREASED [None]
